FAERS Safety Report 8243190-5 (Version None)
Quarter: 2012Q1

REPORT INFORMATION
  Report Type: 
  Country: None (occurrence: None)
  Receive Date: 20120329
  Receipt Date: 20120322
  Transmission Date: 20120608
  Serious: Yes (Other)
  Sender: FDA-Public Use
  Company Number: US-AMGEN-KDL441131

PATIENT
  Age: 41 Year
  Sex: Female
  Weight: 71.202 kg

DRUGS (2)
  1. ENBREL [Suspect]
     Dosage: 50 MG, QWK
     Route: 058
     Dates: start: 20100505
  2. ENBREL [Suspect]
     Indication: RHEUMATOID ARTHRITIS
     Dosage: 50 MG, QWK
     Route: 058
     Dates: start: 20100901

REACTIONS (6)
  - JOINT SWELLING [None]
  - WOUND NECROSIS [None]
  - SKIN INFECTION [None]
  - ERYTHEMA [None]
  - SOFT TISSUE INFECTION [None]
  - JOINT INJURY [None]
